FAERS Safety Report 21602394 (Version 1)
Quarter: 2022Q4

REPORT INFORMATION
  Report Type: Spontaneous
  Country: US (occurrence: None)
  Receive Date: 20221115
  Receipt Date: 20221115
  Transmission Date: 20230112
  Serious: Yes (Disabling)
  Sender: FDA-Public Use
  Company Number: None

PATIENT
  Age: 49 Year
  Sex: Female
  Weight: 60.75 kg

DRUGS (7)
  1. BUPRENORPHINE AND NALOXONE SUBLINGUAL FILM [Suspect]
     Active Substance: BUPRENORPHINE HYDROCHLORIDE\NALOXONE HYDROCHLORIDE
     Indication: Drug use disorder
     Dosage: OTHER QUANTITY : 1 SUBLINGUAL FILM;?FREQUENCY : 4 TIMES A DAY;?
     Route: 060
  2. Sumatriptan Nasal Sprays [Concomitant]
  3. SOMA [Concomitant]
     Active Substance: CARISOPRODOL
  4. XANAX [Concomitant]
     Active Substance: ALPRAZOLAM
  5. buprenorphine + Naloxone 8/2 mg [Concomitant]
  6. NALOXONE [Concomitant]
     Active Substance: NALOXONE
  7. VITAMINS [Concomitant]
     Active Substance: VITAMINS

REACTIONS (3)
  - Gingival bleeding [None]
  - Tooth fracture [None]
  - Tooth fracture [None]

NARRATIVE: CASE EVENT DATE: 20140101
